FAERS Safety Report 19227903 (Version 3)
Quarter: 2021Q2

REPORT INFORMATION
  Report Type: Other
  Country: CO (occurrence: CO)
  Receive Date: 20210506
  Receipt Date: 20210628
  Transmission Date: 20210717
  Serious: Yes (Other)
  Sender: FDA-Public Use
  Company Number: CO-ROCHE-1744075

PATIENT
  Age: 45 Year
  Sex: Female
  Weight: 62 kg

DRUGS (11)
  1. XOLAIR [Suspect]
     Active Substance: OMALIZUMAB
     Route: 058
     Dates: start: 20170801
  2. LISPRO [Concomitant]
     Active Substance: INSULIN LISPRO
  3. XOLAIR [Suspect]
     Active Substance: OMALIZUMAB
     Route: 058
  4. XOLAIR [Suspect]
     Active Substance: OMALIZUMAB
     Route: 058
  5. XOLAIR [Suspect]
     Active Substance: OMALIZUMAB
     Route: 058
     Dates: start: 20201020
  6. SITAGLIPTINE [Concomitant]
     Active Substance: SITAGLIPTIN
     Indication: DIABETES MELLITUS
     Dosage: 20 MG, Q12H (STARTED 1 YEAR AGO)
     Route: 048
  7. INSULIN [Concomitant]
     Active Substance: INSULIN NOS
     Indication: PRODUCT USED FOR UNKNOWN INDICATION
     Route: 065
  8. XOLAIR [Suspect]
     Active Substance: OMALIZUMAB
     Indication: CHRONIC SPONTANEOUS URTICARIA
     Route: 058
     Dates: end: 201512
  9. XOLAIR [Suspect]
     Active Substance: OMALIZUMAB
     Route: 058
     Dates: start: 20160328
  10. XOLAIR [Suspect]
     Active Substance: OMALIZUMAB
     Route: 058
  11. XOLAIR [Suspect]
     Active Substance: OMALIZUMAB
     Route: 058
     Dates: start: 20191001

REACTIONS (13)
  - Product dose omission issue [Unknown]
  - Rash [Unknown]
  - Rash macular [Recovered/Resolved]
  - Inflammation [Unknown]
  - Pruritus [Recovered/Resolved]
  - Dyspnoea [Unknown]
  - Illness [Recovered/Resolved]
  - Choking sensation [Unknown]
  - Asthmatic crisis [Unknown]
  - Oral mucosal eruption [Recovered/Resolved]
  - Urticaria [Recovered/Resolved]
  - Movement disorder [Unknown]
  - Product use issue [Unknown]

NARRATIVE: CASE EVENT DATE: 20201010
